FAERS Safety Report 6406942-X (Version None)
Quarter: 2009Q4

REPORT INFORMATION
  Report Type: 
  Country: None (occurrence: None)
  Receive Date: 20091020
  Receipt Date: 20091015
  Transmission Date: 20100525
  Serious: Yes (Hospitalization)
  Sender: FDA-Public Use
  Company Number: US-KINGPHARMUSA00001-K200901278

PATIENT
  Age: 85 Year
  Sex: Female

DRUGS (3)
  1. ALTACE [Suspect]
     Dosage: 5 MG, QD
     Route: 048
     Dates: end: 20090226
  2. CO-APROVEL [Suspect]
     Dosage: 1 U, QD
     Route: 048
     Dates: end: 20090226
  3. LASILIX [Concomitant]

REACTIONS (4)
  - DEHYDRATION [None]
  - INFLAMMATION [None]
  - RENAL FAILURE ACUTE [None]
  - WHITE BLOOD CELL COUNT INCREASED [None]
